FAERS Safety Report 21397790 (Version 1)
Quarter: 2022Q3

REPORT INFORMATION
  Report Type: Other
  Country: TW (occurrence: TW)
  Receive Date: 20220930
  Receipt Date: 20220930
  Transmission Date: 20221027
  Serious: Yes (Hospitalization, Other)
  Sender: FDA-Public Use
  Company Number: TW-Alcami_Corporation-USA-POI0581202200003

PATIENT
  Age: 16 Year
  Sex: Female

DRUGS (3)
  1. AZASAN [Suspect]
     Active Substance: AZATHIOPRINE
     Indication: Myasthenia gravis
     Dosage: 0.8 MG PER KG
     Route: 048
     Dates: start: 202001, end: 202001
  2. AZASAN [Suspect]
     Active Substance: AZATHIOPRINE
     Dosage: 1.6 MG PER KG
     Route: 048
     Dates: start: 202001, end: 202001
  3. PYRIDOSTIGMINE [Concomitant]
     Active Substance: PYRIDOSTIGMINE
     Indication: Myasthenia gravis
     Dates: start: 201912

REACTIONS (8)
  - Inflammatory bowel disease [Unknown]
  - Colitis [Unknown]
  - Prothrombin time prolonged [Unknown]
  - Renal impairment [Unknown]
  - Oropharyngeal pain [Unknown]
  - Alopecia [Recovered/Resolved]
  - Pyrexia [Unknown]
  - Pancytopenia [Recovered/Resolved]

NARRATIVE: CASE EVENT DATE: 20200101
